FAERS Safety Report 24394793 (Version 1)
Quarter: 2024Q4

REPORT INFORMATION
  Report Type: Spontaneous
  Country: FR (occurrence: FR)
  Receive Date: 20241004
  Receipt Date: 20241004
  Transmission Date: 20250115
  Serious: Yes (Other)
  Sender: SANOFI AVENTIS
  Company Number: FR-SA-2024SA284789

PATIENT
  Age: 11 Year
  Sex: Male

DRUGS (2)
  1. ELOCTATE [Suspect]
     Active Substance: EFMOROCTOCOG ALFA
     Indication: Factor VIII deficiency
     Dosage: EVERY TWO DAYS
     Route: 065
     Dates: end: 2020
  2. ELOCTATE [Suspect]
     Active Substance: EFMOROCTOCOG ALFA
     Indication: Factor VIII deficiency
     Dosage: EVERY TWO DAYS
     Route: 065
     Dates: end: 2020

REACTIONS (4)
  - Haemarthrosis [Unknown]
  - Arthropathy [Unknown]
  - Joint stiffness [Unknown]
  - Synovitis [Unknown]
